FAERS Safety Report 25553603 (Version 2)
Quarter: 2025Q3

REPORT INFORMATION
  Report Type: Spontaneous
  Country: EU (occurrence: EU)
  Receive Date: 20250715
  Receipt Date: 20250723
  Transmission Date: 20251020
  Serious: Yes (Other)
  Sender: MUNDIPHARMA EDO
  Company Number: EU-NAPPMUNDI-GBR-2025-0127179

PATIENT
  Age: 27 Year
  Sex: Male

DRUGS (1)
  1. REZAFUNGIN ACETATE [Suspect]
     Active Substance: REZAFUNGIN ACETATE
     Indication: Product used for unknown indication
     Route: 065
     Dates: start: 20250411, end: 20250625

REACTIONS (1)
  - Hypokalaemia [Unknown]

NARRATIVE: CASE EVENT DATE: 20250511
